FAERS Safety Report 19471722 (Version 27)
Quarter: 2022Q1

REPORT INFORMATION
  Report Type: Report from Study
  Country: BR (occurrence: None)
  Receive Date: 20210629
  Receipt Date: 20220328
  Transmission Date: 20220424
  Serious: Yes (Other)
  Sender: FDA-Public Use
  Company Number: BR-ROCHE-2858140

PATIENT
  Age: 62 Year
  Sex: Male
  Weight: 81.6 kg

DRUGS (17)
  1. ATEZOLIZUMAB [Suspect]
     Active Substance: ATEZOLIZUMAB
     Indication: Malignant melanoma
     Dosage: ON 09/JUN/2021, AT 14. 26, HE RECEIVED MOST RECENT DOSE OF ATEZOLIZUMAB (840 MG) PRIOR TO ONSET OF S
     Route: 041
     Dates: start: 20201209
  2. ATEZOLIZUMAB [Suspect]
     Active Substance: ATEZOLIZUMAB
     Indication: Metastases to central nervous system
  3. COBIMETINIB [Suspect]
     Active Substance: COBIMETINIB
     Indication: Malignant melanoma
     Dosage: ON 26/MAY/2021, HE RECEIVED LAST DOSE OF COBIMETINIB (60 MG) PRIOR TO ONSET OF SERIOUS ADVERSE EVENT
     Route: 048
     Dates: start: 20201111
  4. COBIMETINIB [Suspect]
     Active Substance: COBIMETINIB
     Indication: Metastases to central nervous system
  5. VEMURAFENIB [Suspect]
     Active Substance: VEMURAFENIB
     Indication: Malignant melanoma
     Dosage: ON 26/MAY/2021, HE RECEIVED LAST DOSE OF VEMURAFENIB (720 MG) PRIOR TO ONSET OF SERIOUS ADVERSE EVEN
     Route: 048
     Dates: start: 20201111
  6. VEMURAFENIB [Suspect]
     Active Substance: VEMURAFENIB
     Indication: Metastases to central nervous system
  7. ENALAPRIL [Concomitant]
     Active Substance: ENALAPRIL
     Route: 048
     Dates: start: 20090101
  8. SIMVASTATIN [Concomitant]
     Active Substance: SIMVASTATIN
     Route: 048
     Dates: start: 20090101
  9. ASPIRIN [Concomitant]
     Active Substance: ASPIRIN
     Indication: Prophylaxis
     Route: 048
     Dates: start: 20090101
  10. BUDESONIDE [Concomitant]
     Active Substance: BUDESONIDE
     Dates: start: 20201220
  11. LORATADINE [Concomitant]
     Active Substance: LORATADINE
     Indication: Prophylaxis
     Route: 048
     Dates: start: 20210617, end: 20210617
  12. INFLUENZA VIRUS VACCINE [Concomitant]
     Active Substance: INFLUENZA VIRUS VACCINE
     Indication: Immunisation
     Dosage: 1 AMPULE
     Route: 030
     Dates: start: 20210602, end: 20210602
  13. COVID-19 VACCINE [Concomitant]
     Indication: Immunisation
     Dosage: 1 AMPULE
     Route: 030
     Dates: start: 20210421, end: 20210421
  14. COVID-19 VACCINE [Concomitant]
     Dosage: 1 AMPULE
     Route: 030
     Dates: start: 20210719, end: 20210719
  15. OXYQUINOLINE SULFATE [Concomitant]
     Active Substance: OXYQUINOLINE SULFATE
     Indication: Stomatitis
     Route: 061
     Dates: start: 20201202
  16. TIROTRICINA [Concomitant]
     Indication: Stomatitis
     Route: 061
     Dates: start: 20201202
  17. DESONIDE [Concomitant]
     Active Substance: DESONIDE
     Indication: Vitiligo
     Route: 048
     Dates: start: 20220201

REACTIONS (2)
  - Drug-induced liver injury [Recovered/Resolved]
  - Drug-induced liver injury [Recovered/Resolved]

NARRATIVE: CASE EVENT DATE: 20210622
